FAERS Safety Report 20510875 (Version 3)
Quarter: 2022Q2

REPORT INFORMATION
  Report Type: Report from Study
  Country: US (occurrence: US)
  Receive Date: 20220224
  Receipt Date: 20220610
  Transmission Date: 20220720
  Serious: Yes (Other)
  Sender: FDA-Public Use
  Company Number: US-ABBVIE-22K-163-4287528-00

PATIENT
  Sex: Male
  Weight: 126.21 kg

DRUGS (4)
  1. HUMIRA [Suspect]
     Active Substance: ADALIMUMAB
     Indication: Rheumatoid arthritis
     Dosage: CITRATE-FREE
     Route: 058
     Dates: start: 2021
  2. JANSSEN COVID-19 VACCINE [Suspect]
     Active Substance: AD26.COV2.S
     Indication: COVID-19 immunisation
     Dosage: JOHNSON AND JOHNSON?1ST DOSE
     Route: 030
     Dates: start: 2021, end: 2021
  3. NIMESULIDE [Concomitant]
     Active Substance: NIMESULIDE
     Indication: Product used for unknown indication
  4. TRAZODONE [Concomitant]
     Active Substance: TRAZODONE HYDROCHLORIDE
     Indication: Product used for unknown indication

REACTIONS (12)
  - Blindness unilateral [Unknown]
  - Iritis [Unknown]
  - Prostatic disorder [Unknown]
  - Red blood cell count increased [Unknown]
  - Gait disturbance [Recovering/Resolving]
  - Eye disorder [Recovered/Resolved]
  - Vaccination site pain [Unknown]
  - White blood cell count increased [Unknown]
  - Depressed mood [Unknown]
  - Pain [Unknown]
  - COVID-19 [Recovered/Resolved]
  - Discomfort [Unknown]

NARRATIVE: CASE EVENT DATE: 20210101
